FAERS Safety Report 5518777-0 (Version None)
Quarter: 2007Q4

REPORT INFORMATION
  Report Type: 
  Country: None (occurrence: None)
  Receive Date: 20071115
  Receipt Date: 20071101
  Transmission Date: 20080405
  Serious: Yes (Other)
  Sender: FDA-Public Use
  Company Number: GB-RANBAXY-2007RR-11237

PATIENT

DRUGS (8)
  1. ACETAMINOPHEN [Suspect]
     Dosage: UNK
     Route: 065
  2. CHLORPHENIRAMINE TAB [Suspect]
     Indication: PRURITUS
     Dosage: UNK
     Route: 042
  3. GENTAMICIN [Suspect]
     Route: 042
  4. METRONIDAZOLE HCL [Suspect]
     Route: 042
  5. MORPHINE [Suspect]
     Indication: PAIN
     Dosage: UNK
     Route: 048
  6. COMPOUND SODIUM LACTATE INJECTION [Concomitant]
     Dosage: 80 ML, Q1H
     Route: 042
  7. CYCLOSPORINE [Concomitant]
     Indication: PSORIASIS
     Route: 048
  8. DEXAMETHASONE [Concomitant]
     Indication: MATERNAL THERAPY TO ENHANCE FOETAL LUNG MATURITY
     Dosage: UNK
     Route: 065

REACTIONS (5)
  - FACE OEDEMA [None]
  - GENERALISED OEDEMA [None]
  - PSORIASIS [None]
  - PYREXIA [None]
  - SOMNOLENCE [None]
